FAERS Safety Report 5840615-7 (Version None)
Quarter: 2008Q3

REPORT INFORMATION
  Report Type: 
  Country: None (occurrence: None)
  Receive Date: 20080811
  Receipt Date: 20080729
  Transmission Date: 20090109
  Serious: Yes (Death)
  Sender: FDA-Public Use
  Company Number: DE-ROCHE-578415

PATIENT
  Sex: Female

DRUGS (1)
  1. PEGASYS [Suspect]
     Route: 058
     Dates: start: 20070220

REACTIONS (1)
  - DEATH [None]
